FAERS Safety Report 8350863-2 (Version None)
Quarter: 2012Q2

REPORT INFORMATION
  Report Type: 
  Country: None (occurrence: None)
  Receive Date: 20120510
  Receipt Date: 20120425
  Transmission Date: 20120825
  Serious: Yes (Other)
  Sender: FDA-Public Use
  Company Number: DK-ROCHE-802986

PATIENT
  Age: 64 Year
  Sex: Male

DRUGS (6)
  1. ACITRETIN [Suspect]
     Indication: DERMATITIS ATOPIC
     Route: 065
  2. CELLCEPT [Suspect]
     Indication: DERMATITIS ATOPIC
     Route: 065
  3. METHOTREXATE SODIUM [Suspect]
     Indication: DERMATITIS ATOPIC
     Route: 065
  4. AZATHIOPRINE [Suspect]
     Indication: DERMATITIS ATOPIC
     Dosage: DISCONTINUED
     Route: 065
  5. CYCLOSPORINE [Suspect]
     Dosage: INCREASED AFTER 2 MONTHES FROM INITIAL DOSE
     Route: 065
  6. CYCLOSPORINE [Suspect]
     Indication: DERMATITIS ATOPIC
     Route: 065

REACTIONS (5)
  - LYMPHOCYTOSIS [None]
  - GASTROINTESTINAL DISORDER [None]
  - MYCOSIS FUNGOIDES [None]
  - THROMBOCYTOSIS [None]
  - OFF LABEL USE [None]
